FAERS Safety Report 4704157-4 (Version None)
Quarter: 2005Q2

REPORT INFORMATION
  Report Type: 
  Country: None (occurrence: None)
  Receive Date: 20050629
  Receipt Date: 20050623
  Transmission Date: 20051028
  Serious: Yes (Life-Threatening, Hospitalization)
  Sender: FDA-Public Use
  Company Number: GBWYE769323JUN05

PATIENT
  Age: 42 Year
  Sex: Male

DRUGS (2)
  1. ADVIL [Suspect]
     Dosage: 400 MG 3X PER DAY, ORAL
     Route: 048
  2. SULFASALAZINE [Suspect]
     Indication: POLYARTHRITIS
     Dosage: 1 G 2X PER 1 DAY, ORAL
     Route: 048
     Dates: start: 20050418, end: 20050603

REACTIONS (1)
  - NEUTROPENIC SEPSIS [None]
